FAERS Safety Report 8435429-8 (Version None)
Quarter: 2012Q2

REPORT INFORMATION
  Report Type: 
  Country: None (occurrence: None)
  Receive Date: 20120614
  Receipt Date: 20120605
  Transmission Date: 20120825
  Serious: Yes (Hospitalization)
  Sender: FDA-Public Use
  Company Number: US-BRISTOL-MYERS SQUIBB COMPANY-16663486

PATIENT
  Age: 63 Year
  Sex: Male

DRUGS (1)
  1. YERVOY [Suspect]
     Dates: start: 20120531

REACTIONS (1)
  - HAEMOGLOBIN DECREASED [None]
